FAERS Safety Report 9486592 (Version 1)
Quarter: 2013Q3

REPORT INFORMATION
  Report Type: Spontaneous
  Country: PL (occurrence: PL)
  Receive Date: 20130829
  Receipt Date: 20130829
  Transmission Date: 20140515
  Serious: Yes (Death)
  Sender: FDA-Public Use
  Company Number: PHHY2013PL093733

PATIENT
  Sex: Female

DRUGS (1)
  1. VOTUBIA [Suspect]

REACTIONS (2)
  - Uterine haemorrhage [Fatal]
  - Sepsis [Fatal]
